FAERS Safety Report 6959929-2 (Version None)
Quarter: 2010Q3

REPORT INFORMATION
  Report Type: 
  Country: None (occurrence: None)
  Receive Date: 20100827
  Receipt Date: 20100811
  Transmission Date: 20110219
  Serious: Yes (Hospitalization)
  Sender: FDA-Public Use
  Company Number: 2010MA001696

PATIENT
  Age: 68 Year
  Sex: Female

DRUGS (10)
  1. DICLOFENAC SODIUM [Suspect]
     Indication: BACK PAIN
  2. DIAZEPAM [Concomitant]
  3. AMITRIPTYLINE HYDROCHLORIDE [Concomitant]
  4. VENLAFAXINE [Concomitant]
  5. PANTOPRAZOLE [Concomitant]
  6. MORPHINE [Concomitant]
  7. FUROSEMIDE [Concomitant]
  8. LORAZEPAM [Concomitant]
  9. ATENOLOL [Concomitant]
  10. PREV MEDS [Concomitant]

REACTIONS (3)
  - DRUG TOXICITY [None]
  - LINEAR IGA DISEASE [None]
  - VASCULITIS [None]
